FAERS Safety Report 22782185 (Version 3)
Quarter: 2025Q4

REPORT INFORMATION
  Report Type: Spontaneous
  Country: EU (occurrence: EU)
  Receive Date: 20230803
  Receipt Date: 20251108
  Transmission Date: 20260117
  Serious: Yes (Other)
  Sender: AUROBINDO
  Company Number: EU-002147023-NVSC2023PL158354

PATIENT
  Age: 69 Year
  Sex: Female

DRUGS (10)
  1. FULVESTRANT [Suspect]
     Active Substance: FULVESTRANT
     Indication: Product used for unknown indication
     Dosage: 500 MILLIGRAM, ONCE A DAY((ON DAY 1, 15, 19 AND THEN ONCE A MONTH))
     Route: 065
  2. KISQALI [Suspect]
     Active Substance: RIBOCICLIB SUCCINATE
     Indication: Breast cancer
     Dosage: 600 MILLIGRAM FOR 21 DAYS / 28-DAYS CYCLE)
     Route: 065
  3. KISQALI [Suspect]
     Active Substance: RIBOCICLIB SUCCINATE
     Dosage: 600 MILLIGRAM  (FOR 21 DAYS)
     Route: 065
  4. KISQALI [Suspect]
     Active Substance: RIBOCICLIB SUCCINATE
     Dosage: 400 MILLIGRAM  (2X200MG)
     Route: 065
  5. ZOLEDRONIC ACID [Suspect]
     Active Substance: ZOLEDRONIC ACID
     Indication: Product used for unknown indication
     Dosage: UNK Q4W
     Route: 065
  6. Bibloc [Concomitant]
     Indication: Product used for unknown indication
     Dosage: 2.5 MILLIGRAM
     Route: 065
  7. Glibetic [Concomitant]
     Indication: Product used for unknown indication
     Dosage: UNK (1X1)
     Route: 065
  8. Neurolipon [Concomitant]
     Indication: Product used for unknown indication
     Dosage: 600 MILLIGRAM (1+1)
     Route: 065
  9. METFORMIN HYDROCHLORIDE [Concomitant]
     Active Substance: METFORMIN HYDROCHLORIDE
     Indication: Product used for unknown indication
     Dosage: UNK (850 MG -0-1000 MG)
     Route: 065
  10. TRAZODONE HYDROCHLORIDE [Concomitant]
     Active Substance: TRAZODONE HYDROCHLORIDE
     Indication: Product used for unknown indication
     Dosage: 150 MILLIGRAM  (BEFORE SLEEP)
     Route: 065

REACTIONS (6)
  - Fatigue [Unknown]
  - Neutropenia [Unknown]
  - Appetite disorder [Unknown]
  - Dry skin [Unknown]
  - Pain in extremity [Unknown]
  - Disease progression [Unknown]

NARRATIVE: CASE EVENT DATE: 20210104
